FAERS Safety Report 11152665 (Version 1)
Quarter: 2015Q2

REPORT INFORMATION
  Report Type: Spontaneous
  Country: IT (occurrence: IT)
  Receive Date: 20150601
  Receipt Date: 20150601
  Transmission Date: 20150821
  Serious: Yes (Other)
  Sender: FDA-Public Use
  Company Number: PHHY2015IT063307

PATIENT
  Age: 55 Year
  Sex: Female

DRUGS (4)
  1. METHYLPREDNISOLONE. [Suspect]
     Active Substance: METHYLPREDNISOLONE
     Indication: ATAXIA
     Dosage: 8 MG, QD
     Route: 065
  2. METHYLPREDNISOLONE. [Suspect]
     Active Substance: METHYLPREDNISOLONE
     Indication: MICTURITION URGENCY
     Dosage: 4 MG, QD
     Route: 065
  3. BACLOFEN SANDOZ [Suspect]
     Active Substance: BACLOFEN
     Indication: ATAXIA
     Dosage: 50 MG, QD
     Route: 065
  4. BACLOFEN SANDOZ [Suspect]
     Active Substance: BACLOFEN
     Indication: MICTURITION URGENCY

REACTIONS (1)
  - Suicidal ideation [Recovered/Resolved]
